FAERS Safety Report 10068819 (Version 2)
Quarter: 2014Q2

REPORT INFORMATION
  Report Type: Spontaneous
  Country: US (occurrence: US)
  Receive Date: 20140409
  Receipt Date: 20140523
  Transmission Date: 20141212
  Serious: Yes (Hospitalization, Other)
  Sender: FDA-Public Use
  Company Number: US-PFIZER INC-2014095874

PATIENT
  Age: 39 Year
  Sex: Male
  Weight: 86.2 kg

DRUGS (1)
  1. CHANTIX [Suspect]
     Indication: SMOKING CESSATION THERAPY
     Dosage: 1 MG, 2X/DAY
     Route: 048
     Dates: start: 201402, end: 20140321

REACTIONS (4)
  - Suicide attempt [Unknown]
  - Depression [Unknown]
  - Suicidal ideation [Recovered/Resolved]
  - Blood pressure abnormal [Unknown]
